FAERS Safety Report 16500969 (Version 1)
Quarter: 2019Q3

REPORT INFORMATION
  Report Type: Spontaneous
  Country: US (occurrence: US)
  Receive Date: 20190628
  Receipt Date: 20190628
  Transmission Date: 20191004
  Serious: Yes (Other)
  Sender: FDA-Public Use
  Company Number: None

PATIENT
  Age: 84 Year
  Sex: Female

DRUGS (11)
  1. ATENOLOL. [Concomitant]
     Active Substance: ATENOLOL
  2. VITAMIN C [Concomitant]
     Active Substance: ASCORBIC ACID
  3. COD LIVER OIL [Concomitant]
     Active Substance: COD LIVER OIL
  4. LISINOPRIL. [Concomitant]
     Active Substance: LISINOPRIL
  5. CENTRUM [Concomitant]
     Active Substance: VITAMINS
  6. FOLIC ACID. [Concomitant]
     Active Substance: FOLIC ACID
  7. MEDROXYPROGESTERONE [Concomitant]
     Active Substance: MEDROXYPROGESTERONE
  8. ESTRADIOL. [Concomitant]
     Active Substance: ESTRADIOL
  9. DOXYCYCLINE MONOHYDRATE [Suspect]
     Active Substance: DOXYCYCLINE
     Dosage: ?          QUANTITY:1 TABLET(S);?
     Route: 048
  10. VITAMIN D3 [Concomitant]
     Active Substance: CHOLECALCIFEROL
  11. CO-Q 10 [Concomitant]
     Active Substance: UBIDECARENONE

REACTIONS (1)
  - Cognitive disorder [None]
